FAERS Safety Report 9207891 (Version 3)
Quarter: 2013Q3

REPORT INFORMATION
  Report Type: Report from Study
  Country: HU (occurrence: HU)
  Receive Date: 20130403
  Receipt Date: 20130808
  Transmission Date: 20140515
  Serious: Yes (Other)
  Sender: FDA-Public Use
  Company Number: HU-GLAXOSMITHKLINE-B0880296A

PATIENT
  Sex: Female

DRUGS (9)
  1. SERETIDE DISKUS [Suspect]
     Indication: ASTHMA
     Dosage: 1PUFF TWICE PER DAY
     Route: 055
     Dates: start: 2011
  2. THEOSPIREX [Concomitant]
     Dosage: 150MG THREE TIMES PER DAY
     Route: 065
  3. MONTELUKAST [Concomitant]
     Indication: HYPERSENSITIVITY
     Dosage: 10MG PER DAY
     Route: 065
  4. FRONTIN [Concomitant]
     Indication: DEPRESSION
     Dosage: 5MG FOUR TIMES PER DAY
     Route: 065
  5. VENTOLIN [Concomitant]
     Indication: ASTHMA
  6. FAMOTIDINE [Concomitant]
     Dosage: 150MG PER DAY
     Route: 065
  7. XETER [Concomitant]
     Indication: BLOOD CHOLESTEROL INCREASED
     Dosage: 40MG PER DAY
     Route: 065
  8. PANTOPRAZOLE [Concomitant]
     Dosage: 40MG PER DAY
     Route: 065
  9. NEOCITRAN [Concomitant]
     Indication: COUGH
     Route: 065

REACTIONS (5)
  - Oropharyngeal blistering [Recovered/Resolved]
  - Tongue blistering [Recovered/Resolved]
  - Oral mucosal blistering [Recovered/Resolved]
  - Rash pustular [Not Recovered/Not Resolved]
  - Dysgeusia [Not Recovered/Not Resolved]
